FAERS Safety Report 16103170 (Version 1)
Quarter: 2019Q1

REPORT INFORMATION
  Report Type: Spontaneous
  Country: GB (occurrence: GB)
  Receive Date: 20190322
  Receipt Date: 20190322
  Transmission Date: 20190418
  Serious: Yes (Other)
  Sender: FDA-Public Use
  Company Number: GB-TEVA-2019-GB-1026818

PATIENT
  Age: 67 Year
  Sex: Male
  Weight: 58 kg

DRUGS (23)
  1. PARACETAMOL [Concomitant]
     Active Substance: ACETAMINOPHEN
     Dosage: TAKE 1 OR 2 4 TIMES/DAY
     Dates: start: 20190222
  2. NICORANDIL [Concomitant]
     Active Substance: NICORANDIL
     Dosage: 2 DOSAGE FORMS DAILY;
     Dates: start: 20140220, end: 20190204
  3. LERCANIDIPINE HYDROCHLORIDE [Concomitant]
     Active Substance: LERCANIDIPINE HYDROCHLORIDE
     Dosage: 1 DOSAGE FORMS DAILY;
     Dates: start: 20130103, end: 20190204
  4. DIAMORPHINE HYDROCHLORIDE [Concomitant]
     Active Substance: DIACETYLMORPHINE HYDROCHLORIDE
     Indication: PAIN
     Dosage: 2.5-5MG AS REQUIRED
     Route: 058
     Dates: start: 20190212, end: 20190219
  5. DEXAMETHASONE. [Concomitant]
     Active Substance: DEXAMETHASONE
     Dosage: 4 DOSAGE FORMS DAILY; THEN REDUCE AS DIRECTED...
     Dates: start: 20181203, end: 20190204
  6. BENZYDAMINE HYDROCHLORIDE [Concomitant]
     Active Substance: BENZYDAMINE HYDROCHLORIDE
     Dates: start: 20190224
  7. WATER FOR INJECTION [Concomitant]
     Active Substance: WATER
     Dosage: USE AS DIRECTED
     Dates: start: 20190212, end: 20190219
  8. METRONIDAZOLE. [Concomitant]
     Active Substance: METRONIDAZOLE
     Dosage: 3 DOSAGE FORMS DAILY;
     Dates: start: 20190122, end: 20190123
  9. METOCLOPRAMIDE. [Concomitant]
     Active Substance: METOCLOPRAMIDE
     Dosage: 3 DOSAGE FORMS DAILY;
     Dates: start: 20190204, end: 20190218
  10. CETIRIZINE [Concomitant]
     Active Substance: CETIRIZINE HYDROCHLORIDE
     Dosage: 10 ML DAILY;
     Dates: start: 20190224
  11. ACETYLSALICYLIC ACID [Concomitant]
     Active Substance: ASPIRIN
     Dosage: 1 DOSAGE FORMS DAILY;
     Dates: start: 20190111, end: 20190112
  12. MIDAZOLAM [Concomitant]
     Active Substance: MIDAZOLAM HYDROCHLORIDE
     Dosage: 2.5-5MG 1 - 2 HOURLY AS REQUIRED
     Route: 058
     Dates: start: 20190212, end: 20190219
  13. GLYCERYL TRINITRATE [Concomitant]
     Active Substance: NITROGLYCERIN
     Dosage: AS DIRECTED
     Dates: start: 20180726, end: 20190204
  14. HYOSCINE BUTYLBROMIDE [Concomitant]
     Active Substance: BUTYLSCOPOLAMINE
     Dosage: 2 - 4 HOURLY AS REQUIRED
     Route: 058
     Dates: start: 20190212, end: 20190219
  15. HALOPERIDOL. [Concomitant]
     Active Substance: HALOPERIDOL
     Dosage: 0.5MG - 3MG TO BE GIVEN 2 - 4 HOURLY AS REQUIRED.
     Dates: start: 20190212, end: 20190219
  16. CEFALEXIN [Concomitant]
     Active Substance: CEPHALEXIN
     Dosage: 3 DOSAGE FORMS DAILY;
     Dates: start: 20190122, end: 20190123
  17. PARACETAMOL [Concomitant]
     Active Substance: ACETAMINOPHEN
     Dosage: EVERY 4-6 HOURS UP TO FOUR TIME...
     Dates: start: 20181103, end: 20190204
  18. DOXYCYCLINE. [Concomitant]
     Active Substance: DOXYCYCLINE
     Dosage: TWO NOW THEN ONE DAILY
     Dates: start: 20190224
  19. CODEINE PHOSPHATE [Concomitant]
     Active Substance: CODEINE PHOSPHATE
     Dosage: ONE OR TWO TO BE TAKEN EVERY FOUR HOURS WHEN NE...
     Dates: start: 20181103, end: 20190204
  20. OMEPRAZOLE. [Concomitant]
     Active Substance: OMEPRAZOLE
     Dosage: 1 IU (INTERNATIONAL UNIT) DAILY;
     Dates: start: 20130408
  21. FERROUS FUMARATE [Concomitant]
     Active Substance: FERROUS FUMARATE
     Dosage: 3 DOSAGE FORMS DAILY;
     Dates: start: 20190205
  22. AMOXICILLIN. [Suspect]
     Active Substance: AMOXICILLIN
     Dosage: 1500 MILLIGRAM DAILY;
     Dates: start: 20190222
  23. ATORVASTATIN [Concomitant]
     Active Substance: ATORVASTATIN
     Dosage: 1 DOSAGE FORMS DAILY;
     Dates: start: 20180115, end: 20190204

REACTIONS (2)
  - Tongue ulceration [Recovering/Resolving]
  - Swollen tongue [Unknown]

NARRATIVE: CASE EVENT DATE: 20190222
